FAERS Safety Report 4994102-9 (Version None)
Quarter: 2006Q2

REPORT INFORMATION
  Report Type: 
  Country: None (occurrence: None)
  Receive Date: 20060505
  Receipt Date: 20060427
  Transmission Date: 20061013
  Serious: Yes (Disabling)
  Sender: FDA-Public Use
  Company Number: AU-ROCHE-446149

PATIENT
  Age: 19 Year
  Sex: Male
  Weight: 97 kg

DRUGS (1)
  1. ROACCUTANE [Suspect]
     Route: 048
     Dates: start: 19970603, end: 19980223

REACTIONS (6)
  - ANXIETY [None]
  - DEPRESSION [None]
  - MOOD SWINGS [None]
  - OBSESSIVE-COMPULSIVE DISORDER [None]
  - PARANOIA [None]
  - SUICIDAL IDEATION [None]
